FAERS Safety Report 7831118-9 (Version None)
Quarter: 2011Q4

REPORT INFORMATION
  Report Type: 
  Country: None (occurrence: None)
  Receive Date: 20111021
  Receipt Date: 20111018
  Transmission Date: 20120403
  Serious: Yes (Hospitalization, Disabling)
  Sender: FDA-Public Use
  Company Number: US-B.I. PHARMACEUTICALS,INC./RIDGEFIELD-2011-BP-22124BP

PATIENT
  Age: 68 Year
  Sex: Male
  Weight: 76.65 kg

DRUGS (7)
  1. HYDRALAZINE HCL [Concomitant]
     Dosage: 100 MG
  2. DILTIAZEM HCL [Concomitant]
     Dosage: 240 MG
  3. LEVOTHYROXINE SODIUM [Concomitant]
     Dosage: 300 MCG
  4. LISINOPRIL AND HYDROCHLOROTHIAZIDE [Concomitant]
  5. METFORMIN HCL [Concomitant]
     Dosage: 1700 MG
  6. CLONIDINE [Concomitant]
  7. PRADAXA [Suspect]
     Indication: ATRIAL FIBRILLATION
     Dosage: 300 MG
     Route: 048
     Dates: start: 20110718, end: 20110804

REACTIONS (1)
  - EXTRADURAL HAEMATOMA [None]
